FAERS Safety Report 9571208 (Version 2)
Quarter: 2013Q4

REPORT INFORMATION
  Report Type: Spontaneous
  Country: NL (occurrence: NL)
  Receive Date: 20131001
  Receipt Date: 20131001
  Transmission Date: 20140711
  Serious: Yes (Other)
  Sender: FDA-Public Use
  Company Number: NL-ALEXION PHARMACEUTICALS INC.-A201302200

PATIENT
  Age: 1 Year
  Sex: Female

DRUGS (3)
  1. SOLIRIS 300MG [Suspect]
     Indication: HAEMOLYTIC URAEMIC SYNDROME
     Dosage: 300 MG, SINGLE
     Route: 042
     Dates: start: 20130903, end: 20130903
  2. SOLIRIS 300MG [Suspect]
     Indication: OFF LABEL USE
     Dosage: 300 MG, Q3W
     Route: 042
  3. FENETICILLIN [Concomitant]
     Indication: PROPHYLAXIS
     Route: 042

REACTIONS (3)
  - Mental status changes [Unknown]
  - Cerebral ischaemia [Unknown]
  - Condition aggravated [Unknown]
